FAERS Safety Report 6049461-5 (Version None)
Quarter: 2009Q1

REPORT INFORMATION
  Report Type: 
  Country: None (occurrence: None)
  Receive Date: 20090121
  Receipt Date: 20090112
  Transmission Date: 20090719
  Serious: Yes (Other)
  Sender: FDA-Public Use
  Company Number: 100#08#2008-05578

PATIENT
  Age: 34 Year
  Sex: Male

DRUGS (7)
  1. IRINOTECAN HCL [Suspect]
     Indication: COLON CANCER
     Dosage: 350 MG/M2 (550 MG) INTRAVENOUS
     Route: 042
  2. IRINOTECAN HCL [Suspect]
     Indication: METASTASES TO LIVER
     Dosage: 350 MG/M2 (550 MG) INTRAVENOUS
     Route: 042
  3. CEPACITABINE (CEPACITABINE) [Concomitant]
  4. OXALIPLATIN [Concomitant]
  5. OXYCODONE HCL [Concomitant]
  6. GRANISETRON  HCL [Concomitant]
  7. DEXAMETHASONE TAB [Concomitant]

REACTIONS (1)
  - DYSARTHRIA [None]
